FAERS Safety Report 6867798-4 (Version None)
Quarter: 2010Q3

REPORT INFORMATION
  Report Type: 
  Country: None (occurrence: None)
  Receive Date: 20100722
  Receipt Date: 20100714
  Transmission Date: 20110219
  Serious: Yes (Disabling, Other)
  Sender: FDA-Public Use
  Company Number: US-WYE-H16196710

PATIENT
  Sex: Male

DRUGS (9)
  1. VENLAFAXINE HYDROCHLORIDE [Suspect]
     Indication: DEPRESSION
     Dates: start: 20090601, end: 20100101
  2. VENLAFAXINE HYDROCHLORIDE [Suspect]
     Dates: start: 20100101, end: 20100101
  3. VENLAFAXINE HYDROCHLORIDE [Suspect]
     Dosage: TOOK 1/2 A 75 MG TABLET ONCE A DAY
     Dates: start: 20100101, end: 20100101
  4. VENLAFAXINE HYDROCHLORIDE [Suspect]
     Dosage: TOOK 1/2 A 75 MG TABLET EVERY OTHER DAY
     Dates: start: 20100101, end: 20100515
  5. LORAZEPAM [Concomitant]
     Indication: ANXIETY
     Dosage: 0.5 MG AS NEEDED
  6. LORAZEPAM [Concomitant]
     Indication: SLEEP DISORDER
  7. CETIRIZINE HYDROCHLORIDE [Concomitant]
     Indication: HYPERSENSITIVITY
     Dosage: UNKNOWN
  8. LISINOPRIL AND HYDROCHLOROTHIAZIDE [Concomitant]
     Indication: HYPERTENSION
     Dosage: 12.5/20 MG DAILY
  9. OMEPRAZOLE [Concomitant]
     Indication: DYSPEPSIA
     Dosage: UNKNOWN

REACTIONS (11)
  - ABNORMAL DREAMS [None]
  - ABNORMAL SLEEP-RELATED EVENT [None]
  - ANXIETY [None]
  - CONDITION AGGRAVATED [None]
  - DISTURBANCE IN ATTENTION [None]
  - DRUG WITHDRAWAL SYNDROME [None]
  - NIGHTMARE [None]
  - PARAESTHESIA [None]
  - RAPID EYE MOVEMENTS SLEEP ABNORMAL [None]
  - TINNITUS [None]
  - WEIGHT INCREASED [None]
